FAERS Safety Report 7055245-1 (Version None)
Quarter: 2010Q4

REPORT INFORMATION
  Report Type: 
  Country: None (occurrence: None)
  Receive Date: 20101021
  Receipt Date: 20101015
  Transmission Date: 20110411
  Serious: Yes (Other)
  Sender: FDA-Public Use
  Company Number: US-ASTRAZENECA-2007UW19311

PATIENT
  Age: 15538 Day
  Sex: Male
  Weight: 104.3 kg

DRUGS (12)
  1. SEROQUEL [Suspect]
     Indication: BIPOLAR DISORDER
     Dosage: 200-400 MG
     Route: 048
     Dates: start: 19970301
  2. SEROQUEL [Suspect]
     Indication: DEPRESSION
     Dosage: 200-400 MG
     Route: 048
     Dates: start: 19970301
  3. SEROQUEL [Suspect]
     Dosage: 100 MG - 200 MG - 400 MG
     Route: 048
     Dates: start: 20030814, end: 20071226
  4. SEROQUEL [Suspect]
     Dosage: 100 MG - 200 MG - 400 MG
     Route: 048
     Dates: start: 20030814, end: 20071226
  5. ZYPREXA [Concomitant]
     Indication: BIPOLAR DISORDER
     Route: 048
     Dates: start: 20020816, end: 20021001
  6. ZYPREXA [Concomitant]
     Route: 048
     Dates: start: 20020921
  7. SERZONE [Concomitant]
     Route: 048
     Dates: start: 20020921
  8. ALTACE [Concomitant]
     Route: 048
     Dates: start: 20020917
  9. DEPAKOTE ER [Concomitant]
     Dates: start: 20030917
  10. ABILIFY [Concomitant]
  11. GEODON [Concomitant]
     Dosage: 30 MG FOR 1 MONTH
  12. THORAZINE [Concomitant]
     Dosage: 30 MG FOR 1 MONTH

REACTIONS (2)
  - NEUROPATHY PERIPHERAL [None]
  - TYPE 2 DIABETES MELLITUS [None]
